FAERS Safety Report 14269023 (Version 1)
Quarter: 2017Q4

REPORT INFORMATION
  Report Type: Spontaneous
  Country: US (occurrence: US)
  Receive Date: 20171211
  Receipt Date: 20171211
  Transmission Date: 20180321
  Serious: Yes (Other)
  Sender: FDA-Public Use
  Company Number: US-OTSUKA-2016_014820

PATIENT

DRUGS (1)
  1. ABILIFY [Suspect]
     Active Substance: ARIPIPRAZOLE
     Indication: PRODUCT USED FOR UNKNOWN INDICATION
     Dosage: 30 MG, UNK
     Route: 065
     Dates: start: 20121126, end: 201601

REACTIONS (8)
  - Suicide attempt [Unknown]
  - Obsessive-compulsive personality disorder [Unknown]
  - Brain injury [Unknown]
  - Gambling disorder [Recovered/Resolved]
  - Psychosexual disorder [Unknown]
  - Injury [Unknown]
  - Prescribed overdose [Unknown]
  - Suicidal ideation [Unknown]
